FAERS Safety Report 10625305 (Version 1)
Quarter: 2014Q4

REPORT INFORMATION
  Report Type: Spontaneous
  Country: US (occurrence: None)
  Receive Date: 20141121
  Receipt Date: 20141121
  Transmission Date: 20150529
  Serious: Yes (Other)
  Sender: FDA-Public Use
  Company Number: M-14-065

PATIENT
  Sex: Female

DRUGS (1)
  1. PILOCARPINE HYDROCHLORIDE. [Suspect]
     Active Substance: PILOCARPINE HYDROCHLORIDE
     Indication: DRY MOUTH

REACTIONS (1)
  - Pollakiuria [None]

NARRATIVE: CASE EVENT DATE: 2013
